FAERS Safety Report 24221423 (Version 1)
Quarter: 2024Q3

REPORT INFORMATION
  Report Type: Spontaneous
  Country: US (occurrence: US)
  Receive Date: 20240819
  Receipt Date: 20240819
  Transmission Date: 20241017
  Serious: Yes (Death, Hospitalization, Other)
  Sender: CHEPLAPHARM
  Company Number: US-ROCHE-2983984

PATIENT
  Age: 58 Year
  Sex: Female

DRUGS (12)
  1. CAPECITABINE [Suspect]
     Active Substance: CAPECITABINE
     Indication: Breast cancer metastatic
     Route: 048
     Dates: start: 202207, end: 202210
  2. CAPECITABINE [Suspect]
     Active Substance: CAPECITABINE
     Indication: Breast cancer female
     Route: 048
     Dates: start: 202207, end: 202210
  3. HERCEPTIN [Concomitant]
     Active Substance: TRASTUZUMAB
     Indication: Breast cancer metastatic
     Dates: start: 2018, end: 2019
  4. HERCEPTIN [Concomitant]
     Active Substance: TRASTUZUMAB
     Indication: Breast cancer female
     Dates: start: 2018, end: 2019
  5. HERCEPTIN [Concomitant]
     Active Substance: TRASTUZUMAB
     Indication: Breast cancer metastatic
     Dates: start: 202207, end: 202210
  6. HERCEPTIN [Concomitant]
     Active Substance: TRASTUZUMAB
     Indication: Breast cancer female
     Dates: start: 202207, end: 202210
  7. TECENTRIQ [Concomitant]
     Active Substance: ATEZOLIZUMAB
     Indication: Breast cancer metastatic
     Dosage: IV DRIP
     Route: 042
     Dates: start: 2018, end: 2019
  8. TECENTRIQ [Concomitant]
     Active Substance: ATEZOLIZUMAB
     Indication: Breast cancer female
     Dosage: IV DRIP
     Route: 042
     Dates: start: 2018, end: 2019
  9. PERJETA [Concomitant]
     Active Substance: PERTUZUMAB
     Indication: Breast cancer female
     Dates: start: 2018, end: 2019
  10. PERJETA [Concomitant]
     Active Substance: PERTUZUMAB
     Indication: Breast cancer metastatic
     Dates: start: 2018, end: 2019
  11. KADCYLA [Concomitant]
     Active Substance: ADO-TRASTUZUMAB EMTANSINE
     Indication: Breast cancer female
     Dosage: 2019 -6 MONTHS
     Dates: start: 2018, end: 2019
  12. KADCYLA [Concomitant]
     Active Substance: ADO-TRASTUZUMAB EMTANSINE
     Indication: Breast cancer metastatic
     Dosage: 2019 -6 MONTHS
     Dates: start: 2018, end: 2019

REACTIONS (13)
  - Death [Fatal]
  - Dehydration [Unknown]
  - Diarrhoea [Unknown]
  - Alopecia [Unknown]
  - Neuropathy peripheral [Unknown]
  - Headache [Unknown]
  - Dizziness [Unknown]
  - Fatigue [Unknown]
  - Malaise [Unknown]
  - Visual impairment [Unknown]
  - Hypermetropia [Unknown]
  - Gait disturbance [Unknown]
  - Metastases to central nervous system [Unknown]

NARRATIVE: CASE EVENT DATE: 20181201
